FAERS Safety Report 7447910-9 (Version None)
Quarter: 2011Q2

REPORT INFORMATION
  Report Type: 
  Country: None (occurrence: None)
  Receive Date: 20110429
  Receipt Date: 20100701
  Transmission Date: 20111010
  Serious: No
  Sender: FDA-Public Use
  Company Number: US-ASTRAZENECA-2007UW20096

PATIENT
  Age: 84 Year
  Sex: Female
  Weight: 72.6 kg

DRUGS (4)
  1. ASPIRIN [Concomitant]
  2. HYDROCHLOROTHIAZIDE [Concomitant]
  3. LIPITOR [Concomitant]
  4. NEXIUM [Suspect]
     Indication: GASTROOESOPHAGEAL REFLUX DISEASE
     Route: 048
     Dates: start: 20060801

REACTIONS (6)
  - DRUG DOSE OMISSION [None]
  - ASTHENIA [None]
  - ABDOMINAL PAIN UPPER [None]
  - ERUCTATION [None]
  - GLOSSODYNIA [None]
  - MOUTH ULCERATION [None]
